FAERS Safety Report 8554581-7 (Version None)
Quarter: 2012Q3

REPORT INFORMATION
  Report Type: 
  Country: None (occurrence: None)
  Receive Date: 20120731
  Receipt Date: 20120709
  Transmission Date: 20120928
  Serious: No
  Sender: FDA-Public Use
  Company Number: US-ASTRAZENECA-2012SE43170

PATIENT
  Age: 72 Year
  Sex: Female
  Weight: 68 kg

DRUGS (18)
  1. METOPROLOL TARTRATE [Concomitant]
     Route: 048
  2. TRAMADOL HYDROCHLORIDE [Concomitant]
     Indication: ARTHRALGIA
     Dosage: 50 MG AS NEEDED
  3. FEXOFENADINE [Concomitant]
     Indication: MULTIPLE ALLERGIES
     Dosage: AS NEEDED
  4. PLAVIX [Concomitant]
  5. BRILINTA [Suspect]
     Indication: CORONARY ARTERIAL STENT INSERTION
     Route: 048
     Dates: start: 20120401
  6. RANITIDINE [Concomitant]
     Dosage: AS NEEDED
  7. METFORMIN HYDROCHLORIDE [Concomitant]
  8. GLIPIZIDE [Concomitant]
  9. CLONIDINE [Concomitant]
     Dosage: AS NEEDED
  10. BUSPIRONE HCL [Concomitant]
  11. ASPIRIN [Concomitant]
  12. AMLODIPINE [Concomitant]
  13. CODEINE [Concomitant]
  14. LISINOPRIL AND HYDROCHLOROTHIAZIDE [Suspect]
     Dosage: 20/12.5 MG TWO TIMES A DAY
     Route: 048
  15. GEMFIBROZIL [Concomitant]
  16. ATORVASTATIN [Concomitant]
  17. METFORMIN HYDROCHLORIDE [Concomitant]
     Indication: BLOOD GLUCOSE ABNORMAL
  18. JANUMET [Concomitant]

REACTIONS (11)
  - WEIGHT DECREASED [None]
  - EXERCISE TOLERANCE DECREASED [None]
  - BLOOD GLUCOSE DECREASED [None]
  - MALAISE [None]
  - ARTHRALGIA [None]
  - DYSPNOEA [None]
  - BACK PAIN [None]
  - BREATHING-RELATED SLEEP DISORDER [None]
  - RASH [None]
  - ABDOMINAL PAIN UPPER [None]
  - NAUSEA [None]
